FAERS Safety Report 10078913 (Version 3)
Quarter: 2014Q2

REPORT INFORMATION
  Report Type: Spontaneous
  Country: US (occurrence: US)
  Receive Date: 20140415
  Receipt Date: 20140513
  Transmission Date: 20141212
  Serious: Yes (Other)
  Sender: FDA-Public Use
  Company Number: US-RB-064916-14

PATIENT
  Age: 32 Year
  Sex: Female

DRUGS (2)
  1. SUBOXONE FILM [Suspect]
     Indication: PRODUCT USED FOR UNKNOWN INDICATION
     Dosage: SUBOXONE FILM; TAKING 1/2 STRIP DAILY, FURTHER DOSING DETAILS UNKNOWN
     Route: 065
     Dates: start: 2011, end: 20120601
  2. SUBOXONE FILM [Suspect]
     Dosage: SUBOXONE FILM; TAKING 1/4 STRIP DAILY, SELF TAPERING, FURTHER DOSING DETAILS UNKNOWN
     Route: 065
     Dates: start: 20120602

REACTIONS (9)
  - Wrong technique in drug usage process [Not Recovered/Not Resolved]
  - Maternal exposure during pregnancy [Recovered/Resolved]
  - Intentional underdose [Not Recovered/Not Resolved]
  - Premature labour [Recovered/Resolved]
  - Placental disorder [Recovered/Resolved]
  - Umbilical cord abnormality [Recovered/Resolved]
  - Premature delivery [Recovered/Resolved]
  - Postpartum depression [Recovering/Resolving]
  - Anxiety [Recovering/Resolving]
